FAERS Safety Report 17711722 (Version 1)
Quarter: 2020Q2

REPORT INFORMATION
  Report Type: Spontaneous
  Country: CA (occurrence: CA)
  Receive Date: 20200427
  Receipt Date: 20200427
  Transmission Date: 20200714
  Serious: Yes (Hospitalization)
  Sender: FDA-Public Use
  Company Number: CA-ROCHE-2587386

PATIENT
  Age: 55 Year
  Sex: Female

DRUGS (22)
  1. FLUOROURACIL. [Suspect]
     Active Substance: FLUOROURACIL
     Route: 042
  2. ZANTAC [Concomitant]
     Active Substance: RANITIDINE HYDROCHLORIDE
     Indication: PROPHYLAXIS
     Route: 048
  3. TRASTUZUMAB. [Suspect]
     Active Substance: TRASTUZUMAB
     Indication: PRODUCT USED FOR UNKNOWN INDICATION
     Route: 065
  4. GRAVOL [Concomitant]
     Active Substance: DIMENHYDRINATE
     Indication: NAUSEA
     Route: 048
  5. LOVENOX [Concomitant]
     Active Substance: ENOXAPARIN SODIUM
     Indication: ANTIPHOSPHOLIPID ANTIBODIES POSITIVE
     Route: 058
  6. TYLENOL [Concomitant]
     Active Substance: ACETAMINOPHEN
     Route: 048
  7. VITAMIN C [Concomitant]
     Active Substance: ASCORBIC ACID
     Route: 048
  8. ZOVIRAX [Concomitant]
     Active Substance: ACYCLOVIR
     Indication: ORAL HERPES
     Route: 061
  9. DOCETAXEL. [Suspect]
     Active Substance: DOCETAXEL
     Indication: PRODUCT USED FOR UNKNOWN INDICATION
     Route: 042
  10. TYLENOL [Concomitant]
     Active Substance: ACETAMINOPHEN
     Indication: PYREXIA
     Route: 048
  11. VALACICLOVIR [Concomitant]
     Active Substance: VALACYCLOVIR HYDROCHLORIDE
     Indication: ORAL HERPES
     Route: 061
  12. VALTREX [Concomitant]
     Active Substance: VALACYCLOVIR HYDROCHLORIDE
     Indication: NEURALGIA
     Route: 048
  13. ALEVE [Concomitant]
     Active Substance: NAPROXEN SODIUM
     Indication: NEURALGIA
     Route: 048
  14. TYLENOL [Concomitant]
     Active Substance: ACETAMINOPHEN
     Indication: HEADACHE
     Route: 048
  15. TYLENOL [Concomitant]
     Active Substance: ACETAMINOPHEN
     Route: 048
  16. TYLENOL [Concomitant]
     Active Substance: ACETAMINOPHEN
     Route: 048
  17. PERJETA [Suspect]
     Active Substance: PERTUZUMAB
     Indication: PRODUCT USED FOR UNKNOWN INDICATION
     Dosage: 14ML VIAL - CONCENTRATE SOL.
     Route: 042
  18. EPIRUBICIN [Suspect]
     Active Substance: EPIRUBICIN
     Route: 042
  19. PROCYTOX [Suspect]
     Active Substance: CYCLOPHOSPHAMIDE
     Route: 042
  20. MEFENAMIC ACID. [Concomitant]
     Active Substance: MEFENAMIC ACID
     Indication: NEURALGIA
     Route: 048
  21. METOCLOPRAMIDE HYDROCHLORIDE. [Concomitant]
     Active Substance: METOCLOPRAMIDE HYDROCHLORIDE
     Indication: NAUSEA
     Route: 048
  22. VITAMIN D3 [Concomitant]
     Active Substance: CHOLECALCIFEROL
     Route: 048

REACTIONS (6)
  - Chills [Recovered/Resolved]
  - Gastrointestinal pain [Recovered/Resolved]
  - Hyperhidrosis [Recovered/Resolved]
  - Febrile neutropenia [Recovered/Resolved]
  - Abdominal pain upper [Recovered/Resolved]
  - Diarrhoea [Recovered/Resolved]
